FAERS Safety Report 4994397-1 (Version None)
Quarter: 2006Q1

REPORT INFORMATION
  Report Type: 
  Country: None (occurrence: None)
  Receive Date: 20060310
  Receipt Date: 20060109
  Transmission Date: 20060701
  Serious: No
  Sender: FDA-Public Use
  Company Number: IND-AE-06-SAN-001

PATIENT
  Age: 60 Year
  Sex: Female

DRUGS (2)
  1. SANCTURA [Suspect]
     Indication: HYPERTONIC BLADDER
     Dosage: 20MG - BID - ORAL
     Route: 048
  2. HUMIRA [Concomitant]

REACTIONS (1)
  - RASH [None]
